FAERS Safety Report 10160808 (Version 2)
Quarter: 2014Q2

REPORT INFORMATION
  Report Type: Spontaneous
  Country: US (occurrence: US)
  Receive Date: 20140508
  Receipt Date: 20140625
  Transmission Date: 20141212
  Serious: Yes (Hospitalization)
  Sender: FDA-Public Use
  Company Number: US-TEVA-479482USA

PATIENT
  Age: 41 Year
  Sex: Female

DRUGS (6)
  1. COPAXONE 40MG [Suspect]
     Indication: MULTIPLE SCLEROSIS
  2. NOVOLOG [Concomitant]
  3. CALCIUM [Concomitant]
  4. VITAMIN D2 [Concomitant]
  5. ASPIRIN [Concomitant]
  6. NUVIGIL [Concomitant]

REACTIONS (6)
  - Injection site cellulitis [Recovered/Resolved]
  - Injection site induration [Recovered/Resolved]
  - Injection site pain [Recovered/Resolved]
  - Pyrexia [Recovered/Resolved]
  - Chills [Recovered/Resolved]
  - Hypotension [Recovered/Resolved]
